FAERS Safety Report 16538212 (Version 2)
Quarter: 2019Q4

REPORT INFORMATION
  Report Type: Report from Study
  Country: US (occurrence: US)
  Receive Date: 20190708
  Receipt Date: 20191217
  Transmission Date: 20200122
  Serious: Yes (Other)
  Sender: FDA-Public Use
  Company Number: US-SA-2019SA182268

PATIENT
  Age: 72 Year
  Sex: Female

DRUGS (9)
  1. AMLODIPINE [Suspect]
     Active Substance: AMLODIPINE BESYLATE
     Indication: HYPERTENSION
  2. IBUPROFEN. [Suspect]
     Active Substance: IBUPROFEN
  3. COENZYME Q10 [Concomitant]
     Active Substance: UBIDECARENONE
  4. ALIROCUMAB [Suspect]
     Active Substance: ALIROCUMAB
     Indication: HYPERLIPIDAEMIA
     Dosage: 75 MG, QOW
     Dates: start: 2019, end: 2019
  5. PLAVIX [Concomitant]
     Active Substance: CLOPIDOGREL BISULFATE
  6. FOLIC ACID. [Concomitant]
     Active Substance: FOLIC ACID
  7. ALIROCUMAB [Suspect]
     Active Substance: ALIROCUMAB
     Indication: BLOOD CHOLESTEROL ABNORMAL
  8. LEVOTHYROXINE. [Concomitant]
     Active Substance: LEVOTHYROXINE
  9. METANX [Concomitant]
     Active Substance: LEVOMEFOLATE CALCIUM\METHYLCOBALAMIN\PYRIDOXAL PHOSPHATE ANHYDROUS
     Indication: PAIN IN EXTREMITY

REACTIONS (27)
  - Insomnia [Unknown]
  - Oesophageal hypomotility [Recovered/Resolved]
  - Urinary incontinence [Unknown]
  - Condition aggravated [Unknown]
  - Condition aggravated [Unknown]
  - Weight decreased [Unknown]
  - Vocal cord disorder [Unknown]
  - Arthritis [Unknown]
  - Product dose omission [Unknown]
  - Urinary bladder haemorrhage [Unknown]
  - Drug interaction [Recovered/Resolved]
  - Feeling abnormal [Unknown]
  - Drug hypersensitivity [Unknown]
  - Escherichia infection [Unknown]
  - Vomiting [Unknown]
  - Pain [Unknown]
  - Lymphadenopathy [Unknown]
  - Gastrooesophageal reflux disease [Not Recovered/Not Resolved]
  - Nausea [Recovered/Resolved]
  - Fatigue [Unknown]
  - Rhinorrhoea [Unknown]
  - Oesophageal disorder [Recovered/Resolved]
  - Tenderness [Unknown]
  - Anal incontinence [Unknown]
  - Muscle spasms [Unknown]
  - Erosive oesophagitis [Unknown]
  - Breast pain [Unknown]

NARRATIVE: CASE EVENT DATE: 2019
